FAERS Safety Report 5449812-6 (Version None)
Quarter: 2007Q3

REPORT INFORMATION
  Report Type: 
  Country: None (occurrence: None)
  Receive Date: 20070912
  Receipt Date: 20070907
  Transmission Date: 20080115
  Serious: Yes (Death, Hospitalization)
  Sender: FDA-Public Use
  Company Number: US-JNJFOC-20070804328

PATIENT
  Sex: Female
  Weight: 85.9 kg

DRUGS (11)
  1. DOXORUBICIN HCL [Suspect]
     Route: 042
  2. DOXORUBICIN HCL [Suspect]
     Indication: MULTIPLE MYELOMA
     Route: 042
  3. THALIDOMIDE [Suspect]
     Indication: MULTIPLE MYELOMA
     Route: 048
  4. DECADRON [Suspect]
     Indication: MULTIPLE MYELOMA
     Route: 048
  5. METOPROLOL SUCCINATE [Concomitant]
     Route: 065
  6. HYDROCHLOROTHIAZIDE [Concomitant]
     Route: 065
  7. LOVASTATIN [Concomitant]
     Route: 065
  8. COUMADIN [Concomitant]
     Indication: ATRIAL FIBRILLATION
     Route: 065
  9. VALTREX [Concomitant]
     Route: 065
  10. BACTRIM [Concomitant]
     Route: 048
  11. ATENOLOL [Concomitant]
     Route: 065

REACTIONS (5)
  - ANAEMIA [None]
  - COAGULOPATHY [None]
  - HYPOTENSION [None]
  - PNEUMONIA [None]
  - SEPSIS [None]
